FAERS Safety Report 5664238-8 (Version None)
Quarter: 2008Q1

REPORT INFORMATION
  Report Type: 
  Country: None (occurrence: None)
  Receive Date: 20080314
  Receipt Date: 20080305
  Transmission Date: 20080703
  Serious: Yes (Other)
  Sender: FDA-Public Use
  Company Number: GB-PFIZER INC-2008021402

PATIENT
  Age: 38 Year
  Sex: Female

DRUGS (5)
  1. PREDNISOLONE [Suspect]
     Indication: ASTHMA
     Route: 048
  2. SALBUTAMOL INHALATION SOLN. [Suspect]
     Indication: ASTHMA
     Route: 055
  3. ENOXAPARIN SODIUM [Concomitant]
     Dosage: TEXT:40MG BID EVERY DAY TDD:80MG
  4. FUROSEMIDE [Concomitant]
     Dosage: TEXT:80MG BID EVERY DAY TDD:160MG
  5. ASPIRIN [Concomitant]

REACTIONS (2)
  - DRUG EXPOSURE DURING PREGNANCY [None]
  - PERIPARTUM CARDIOMYOPATHY [None]
